FAERS Safety Report 14894027 (Version 1)
Quarter: 2018Q2

REPORT INFORMATION
  Report Type: Spontaneous
  Country: FR (occurrence: FR)
  Receive Date: 20180514
  Receipt Date: 20180514
  Transmission Date: 20180711
  Serious: Yes (Hospitalization)
  Sender: FDA-Public Use
  Company Number: FR-009507513-1805FRA004492

PATIENT
  Age: 75 Year
  Sex: Female

DRUGS (1)
  1. KEYTRUDA [Suspect]
     Active Substance: PEMBROLIZUMAB
     Indication: LUNG CARCINOMA CELL TYPE UNSPECIFIED STAGE IV
     Dosage: CYCLICAL
     Route: 042
     Dates: start: 20170926, end: 20170926

REACTIONS (2)
  - Tubulointerstitial nephritis [Recovering/Resolving]
  - Nephritis allergic [Recovering/Resolving]

NARRATIVE: CASE EVENT DATE: 20171004
